FAERS Safety Report 4269196-9 (Version None)
Quarter: 2004Q1

REPORT INFORMATION
  Report Type: 
  Country: None (occurrence: None)
  Receive Date: 20040112
  Receipt Date: 20040112
  Transmission Date: 20041129
  Serious: Yes (Other)
  Sender: FDA-Public Use
  Company Number: None

PATIENT
  Age: 55 Year
  Sex: Female
  Weight: 68.9 kg

DRUGS (2)
  1. FOSINOPRIL SODIUM [Suspect]
     Indication: CARDIAC FAILURE CONGESTIVE
     Dosage: 10MG, 10MG QD, ORAL
     Route: 048
     Dates: start: 20030904, end: 20031205
  2. FOSINOPRIL SODIUM [Suspect]
     Indication: HYPERTENSION
     Dosage: 10MG, 10MG QD, ORAL
     Route: 048
     Dates: start: 20030904, end: 20031205

REACTIONS (1)
  - COUGH [None]
